FAERS Safety Report 6212895-X (Version None)
Quarter: 2009Q2

REPORT INFORMATION
  Report Type: 
  Country: None (occurrence: None)
  Receive Date: 20090603
  Receipt Date: 20090528
  Transmission Date: 20091009
  Serious: Yes (Hospitalization)
  Sender: FDA-Public Use
  Company Number: ES-AVENTIS-200915477GDDC

PATIENT
  Age: 92 Year
  Sex: Female

DRUGS (1)
  1. DAONIL [Suspect]
     Route: 048
     Dates: start: 20061113, end: 20070910

REACTIONS (3)
  - DIZZINESS [None]
  - HYPOGLYCAEMIA [None]
  - TRAUMATIC BRAIN INJURY [None]
